FAERS Safety Report 10313706 (Version 1)
Quarter: 2014Q3

REPORT INFORMATION
  Report Type: Spontaneous
  Country: US (occurrence: None)
  Receive Date: 20140716
  Receipt Date: 20140716
  Transmission Date: 20150326
  Serious: Yes (Other)
  Sender: FDA-Public Use
  Company Number: 20140515

PATIENT

DRUGS (3)
  1. BABY ASPIRIN [Concomitant]
     Active Substance: ASPIRIN
  2. NIGHTTIME SLEEP-AID [Suspect]
     Active Substance: DIPHENHYDRAMINE HYDROCHLORIDE
     Indication: SLEEP DISORDER THERAPY
     Dosage: UNKNOWN
  3. IRON INFUSIONS [Concomitant]

REACTIONS (6)
  - Lethargy [None]
  - Asthenia [None]
  - Muscle spasms [None]
  - Pallor [None]
  - Lung disorder [None]
  - Pain [None]

NARRATIVE: CASE EVENT DATE: 2014
